FAERS Safety Report 17323299 (Version 1)
Quarter: 2020Q1

REPORT INFORMATION
  Report Type: Spontaneous
  Country: US (occurrence: US)
  Receive Date: 20200108
  Receipt Date: 20200108
  Transmission Date: 20200409
  Serious: Yes (Hospitalization)
  Sender: FDA-Public Use
  Company Number: None

PATIENT
  Age: 4 Year
  Sex: Male
  Weight: 15.4 kg

DRUGS (3)
  1. DEXAMETHASONE. [Suspect]
     Active Substance: DEXAMETHASONE
     Dates: end: 20191227
  2. METHOTREXATE. [Suspect]
     Active Substance: METHOTREXATE
     Dates: end: 20191223
  3. VINCRISTINE SULFATE. [Suspect]
     Active Substance: VINCRISTINE SULFATE
     Dates: end: 20191223

REACTIONS (7)
  - Neutropenia [None]
  - Pyrexia [None]
  - Middle insomnia [None]
  - Rhinorrhoea [None]
  - Otitis media acute [None]
  - Screaming [None]
  - Pulmonary congestion [None]

NARRATIVE: CASE EVENT DATE: 20200105
